FAERS Safety Report 6867845-X (Version None)
Quarter: 2010Q3

REPORT INFORMATION
  Report Type: 
  Country: None (occurrence: None)
  Receive Date: 20100722
  Receipt Date: 20080504
  Transmission Date: 20110219
  Serious: No
  Sender: FDA-Public Use
  Company Number: US-PFIZER INC-2008039701

PATIENT
  Sex: Female
  Weight: 70.5 kg

DRUGS (11)
  1. CHANTIX [Suspect]
     Indication: SMOKING CESSATION THERAPY
     Route: 048
     Dates: start: 20080401
  2. LEXAPRO [Concomitant]
     Dates: start: 20020101
  3. KLONOPIN [Concomitant]
     Dates: start: 20020101
  4. RISPERDAL [Concomitant]
     Dates: start: 20020101
  5. TRAZODONE [Concomitant]
  6. LISINOPRIL [Concomitant]
  7. FUROSEMIDE [Concomitant]
  8. NITROGLYCERIN [Concomitant]
  9. KLOR-CON [Concomitant]
  10. ACETYLSALICYLIC ACID [Concomitant]
  11. CARVEDILOL [Concomitant]

REACTIONS (2)
  - DEPRESSION [None]
  - SOMNOLENCE [None]
